FAERS Safety Report 10037539 (Version 2)
Quarter: 2014Q4

REPORT INFORMATION
  Report Type: Report from Study
  Country: CN (occurrence: CN)
  Receive Date: 20140326
  Receipt Date: 20141203
  Transmission Date: 20150528
  Serious: Yes (Hospitalization)
  Sender: FDA-Public Use
  Company Number: CN-ASTELLAS-2014US002871

PATIENT
  Age: 84 Year
  Sex: Male

DRUGS (1)
  1. ERLOTINIB [Suspect]
     Active Substance: ERLOTINIB
     Indication: NON-SMALL CELL LUNG CANCER
     Route: 048
     Dates: start: 20130928

REACTIONS (4)
  - Fall [Unknown]
  - Spinal compression fracture [Unknown]
  - Forearm fracture [Unknown]
  - Limb injury [Unknown]

NARRATIVE: CASE EVENT DATE: 201402
